FAERS Safety Report 4634879-5 (Version None)
Quarter: 2005Q2

REPORT INFORMATION
  Report Type: 
  Country: None (occurrence: None)
  Receive Date: 20050412
  Receipt Date: 20050329
  Transmission Date: 20051028
  Serious: Yes (Other)
  Sender: FDA-Public Use
  Company Number: DE-2005-001344

PATIENT
  Age: 45 Year
  Sex: Female
  Weight: 68 kg

DRUGS (2)
  1. MIRENA [Suspect]
     Indication: MENORRHAGIA
     Dosage: 20 UG/DAY, CONT, INTRA-UTERINE
     Route: 015
     Dates: start: 20040725
  2. LEVOTHYROXINE SODIUM [Concomitant]

REACTIONS (4)
  - CONDITION AGGRAVATED [None]
  - GLAUCOMA [None]
  - OPTIC NERVE DISORDER [None]
  - VISION BLURRED [None]
